FAERS Safety Report 24610328 (Version 1)
Quarter: 2024Q4

REPORT INFORMATION
  Report Type: Spontaneous
  Country: FR (occurrence: FR)
  Receive Date: 20241112
  Receipt Date: 20241112
  Transmission Date: 20250114
  Serious: Yes (Hospitalization)
  Sender: FRESENIUS KABI
  Company Number: None

PATIENT
  Age: 78 Year
  Sex: Female
  Weight: 65 kg

DRUGS (8)
  1. CARBOPLATIN [Suspect]
     Active Substance: CARBOPLATIN
     Indication: Cervix carcinoma
     Route: 042
     Dates: start: 20240923
  2. PACLITAXEL [Suspect]
     Active Substance: PACLITAXEL
     Indication: Cervix carcinoma
     Route: 042
     Dates: start: 20240923
  3. PEMBROLIZUMAB [Suspect]
     Active Substance: PEMBROLIZUMAB
     Indication: Cervix carcinoma
     Route: 042
     Dates: start: 20240923
  4. AMLODIPINE [Concomitant]
     Active Substance: AMLODIPINE BESYLATE
     Indication: Product used for unknown indication
  5. EUPRESSYL 30 mg, capsule [Concomitant]
     Indication: Product used for unknown indication
  6. PRAVASTATIN ACCORD 20 mg, tablets [Concomitant]
     Indication: Product used for unknown indication
  7. UVEDOSE 100 000 UI, drinkable solution in ampoule [Concomitant]
     Indication: Product used for unknown indication
  8. FLUOXETINE ACCORD 20 mg, capsule [Concomitant]
     Indication: Product used for unknown indication

REACTIONS (2)
  - Rash maculo-papular [Recovered/Resolved]
  - Aplastic anaemia [Unknown]

NARRATIVE: CASE EVENT DATE: 20241002
